FAERS Safety Report 5943300-6 (Version None)
Quarter: 2008Q4

REPORT INFORMATION
  Report Type: 
  Country: None (occurrence: None)
  Receive Date: 20081106
  Receipt Date: 20081030
  Transmission Date: 20090506
  Serious: Yes (Disabling, Other)
  Sender: FDA-Public Use
  Company Number: PHHY2008BR15026

PATIENT
  Sex: Male
  Weight: 23.6 kg

DRUGS (58)
  1. SANDIMMUNE [Suspect]
     Indication: PROPHYLAXIS AGAINST GRAFT VERSUS HOST DISEASE
     Dosage: 37 MG, Q12H
     Route: 042
     Dates: start: 20080523
  2. SANDIMMUNE [Suspect]
     Dosage: 45 MG, Q12H
     Dates: start: 20080605, end: 20080609
  3. SANDIMMUNE [Suspect]
     Dosage: 50 MG, Q12H
     Dates: start: 20080612
  4. SANDIMMUNE [Suspect]
     Dosage: 55 MG, Q12H
     Dates: start: 20080613, end: 20080619
  5. SANDIMMUNE [Suspect]
     Dosage: 27 MG, Q12H
     Dates: start: 20080619, end: 20080724
  6. SOLU-MEDROL [Concomitant]
     Dosage: 50 MG
     Dates: start: 20080517
  7. IMMUNE GLOBULIN INTRAVENOUS (HUMAN) [Concomitant]
     Dosage: 12 MG
     Dates: start: 20080516
  8. IMMUNE GLOBULIN INTRAVENOUS (HUMAN) [Concomitant]
     Dosage: 11 MG
     Dates: start: 20080612
  9. ATGAM [Concomitant]
     Dosage: 15 MG/DAY
     Dates: start: 20080517
  10. METHOTREXATE [Concomitant]
     Dosage: 12 MG
     Dates: start: 20080524
  11. METHOTREXATE [Concomitant]
     Dosage: 8 MG
  12. ONDANSETRON HYDROCHLORIDE [Concomitant]
  13. ACYCLOVIR [Concomitant]
  14. FLUCONAZOLE [Concomitant]
  15. URSODIOL [Concomitant]
  16. CEFEPIME [Concomitant]
     Dosage: 1150 MG
     Dates: start: 20080516
  17. TYLENOL [Concomitant]
     Dosage: 24 DROPS
     Dates: start: 20080515
  18. LASIX [Concomitant]
     Dosage: 10 MG
     Dates: start: 20080515
  19. BACTRIM [Concomitant]
     Dosage: 1 VIAL
     Dates: start: 20080515
  20. ZOLBEN [Concomitant]
     Dosage: 400 MG
     Dates: start: 20080515
  21. DIPYRONE TAB [Concomitant]
     Dosage: 1 ML
     Dates: start: 20080515
  22. CYCLOPHOSPHAMIDE [Concomitant]
     Dosage: 1400 MG/DAY
     Dates: start: 20080516
  23. MITEXAN [Concomitant]
     Dosage: 250 MG
     Dates: start: 20080516
  24. ZOFRAN [Concomitant]
     Dosage: 3 MG
     Dates: start: 20080516
  25. ZOFRAN [Concomitant]
     Dosage: 4 MG
  26. ZOFRAN [Concomitant]
     Dosage: 5 MG
  27. URSACOL [Concomitant]
     Dosage: 75 MG
     Dates: start: 20080516
  28. DEXAMETHASONE [Concomitant]
     Dosage: 10 MG
     Dates: start: 20080516
  29. FENERGAN [Concomitant]
     Dosage: 1 VIAL
     Dates: start: 20080517
  30. FENERGAN [Concomitant]
     Dosage: 4 VIAL
  31. STREPTOKINASE [Concomitant]
     Dosage: 15000 IU
     Dates: start: 20080519
  32. CHLORAL HYDRATE [Concomitant]
     Dosage: 6 ML
     Dates: start: 20080520
  33. CHLORAL HYDRATE [Concomitant]
     Dosage: 5 ML
     Dates: start: 20080520
  34. ZOVIRAX [Concomitant]
     Dosage: 400 MG
     Dates: start: 20080522
  35. ZOLTEC [Concomitant]
     Dosage: 75 MG
     Dates: start: 20080522
  36. MANNITOL [Concomitant]
     Dosage: 50 ML
     Dates: start: 20080523
  37. LEUCOVORIN CALCIUM [Concomitant]
     Dosage: 15
     Dates: start: 20080525
  38. LEUCOVORIN CALCIUM [Concomitant]
     Dosage: 10
  39. HYOSCINE [Concomitant]
     Dosage: UNK
     Dates: start: 20080527
  40. MORPHINE [Concomitant]
     Dosage: 10 MG
     Dates: start: 20080527
  41. CAPOTEN [Concomitant]
     Dosage: 6 MG
     Dates: start: 20080529
  42. CAPOTEN [Concomitant]
     Dosage: 25 MG
  43. AMLODIPINE [Concomitant]
     Dosage: 2 MG
     Dates: start: 20080530
  44. AMLODIPINE [Concomitant]
     Dosage: 5 MG
  45. FLAGYL [Concomitant]
     Dosage: 110 MG
     Dates: start: 20080605
  46. DIGESAN [Concomitant]
     Dosage: 3 MG
     Dates: start: 20080606
  47. DIGESAN [Concomitant]
     Dosage: 5 MG
  48. GRANULOKINE [Concomitant]
     Dosage: 150 MG
     Dates: start: 20080607
  49. NBZ [Concomitant]
     Dosage: 3 ML
     Dates: start: 20080607
  50. MEROPENEM [Concomitant]
     Dosage: 450 MG
     Dates: start: 20080608
  51. VORICONAZOLE [Concomitant]
     Dosage: 400 MG
     Dates: start: 20080609
  52. BROMOPRIDE [Concomitant]
     Dosage: 3 ML
     Dates: start: 20080612
  53. BROMOPRIDE [Concomitant]
     Dosage: 5 ML
  54. VANCOMYCIN HCL [Concomitant]
     Dosage: 220 MG
     Dates: start: 20080613
  55. METHOTREXATE [Concomitant]
  56. TYLENOL [Concomitant]
  57. VANCOMYCIN [Concomitant]
  58. VFEND [Concomitant]

REACTIONS (19)
  - ABDOMINAL PAIN [None]
  - AMAUROSIS [None]
  - BLOOD MAGNESIUM INCREASED [None]
  - CEREBRAL ATROPHY [None]
  - DIARRHOEA [None]
  - DRUG TOXICITY [None]
  - HAEMATEMESIS [None]
  - HEADACHE [None]
  - HYPERTENSION [None]
  - IMMUNOSUPPRESSANT DRUG LEVEL INCREASED [None]
  - IRRITABILITY [None]
  - NAUSEA [None]
  - PROCTALGIA [None]
  - PYREXIA [None]
  - RESPIRATORY SYNCYTIAL VIRUS INFECTION [None]
  - SKIN NODULE [None]
  - SOMNOLENCE [None]
  - VISION BLURRED [None]
  - VOMITING [None]
